FAERS Safety Report 26111795 (Version 1)
Quarter: 2025Q4

REPORT INFORMATION
  Report Type: Spontaneous
  Country: US (occurrence: US)
  Receive Date: 20251202
  Receipt Date: 20251202
  Transmission Date: 20260117
  Serious: Yes (Hospitalization, Other)
  Sender: MANKIND PHARMA
  Company Number: US-MANKIND PHARMA LIMITED-2025-US-00187

PATIENT
  Age: 66 Year
  Sex: Female

DRUGS (4)
  1. ROSUVASTATIN [Interacting]
     Active Substance: ROSUVASTATIN
     Indication: Hyperlipidaemia
     Dosage: 40 MILLIGRAM
  2. ROSUVASTATIN [Interacting]
     Active Substance: ROSUVASTATIN
     Dosage: 20 MILLIGRAM
  3. ABEMACICLIB [Interacting]
     Active Substance: ABEMACICLIB
     Indication: Hormone receptor positive HER2 positive breast cancer
  4. FULVESTRANT [Concomitant]
     Active Substance: FULVESTRANT
     Indication: Hormone receptor positive HER2 positive breast cancer

REACTIONS (3)
  - Acute kidney injury [Recovered/Resolved with Sequelae]
  - Rhabdomyolysis [Recovered/Resolved]
  - Drug interaction [Unknown]
